FAERS Safety Report 6638194-X (Version None)
Quarter: 2010Q1

REPORT INFORMATION
  Report Type: 
  Country: None (occurrence: None)
  Receive Date: 20100317
  Receipt Date: 20100309
  Transmission Date: 20100710
  Serious: Yes (Hospitalization)
  Sender: FDA-Public Use
  Company Number: NL-ROCHE-499838

PATIENT
  Sex: Female
  Weight: 102.3 kg

DRUGS (19)
  1. BEVACIZUMAB [Suspect]
     Route: 042
     Dates: start: 20061122, end: 20070515
  2. FLUOROURACIL [Suspect]
     Route: 065
  3. OXALIPLATIN [Suspect]
     Indication: COLON CANCER
     Route: 065
  4. FOLINIC ACID [Suspect]
     Indication: COLON CANCER
     Route: 065
  5. METFORMIN HCL [Concomitant]
     Indication: DIABETES MELLITUS
     Route: 048
     Dates: start: 20061109
  6. TOLPROPAMINE [Concomitant]
     Indication: DIABETES MELLITUS
     Dosage: REPORTED AS TOLBUTAMINE.
     Route: 048
     Dates: start: 20061109
  7. SIMVASTIN [Concomitant]
     Route: 048
     Dates: start: 20061109
  8. OMEPRAZOLE [Concomitant]
     Route: 048
     Dates: start: 20061109
  9. INSULATARD [Concomitant]
     Indication: DIABETES MELLITUS
     Dosage: DRUG REPORTED AS INSULATARD 100 IE/ML, TDD REPORTED AS SCHEDULED.
     Route: 058
     Dates: start: 20061109
  10. PARACETAMOL [Concomitant]
     Route: 048
     Dates: start: 20070206
  11. OXYCODONE HCL [Concomitant]
     Route: 048
     Dates: start: 20070425, end: 20070515
  12. OXYCONTIN [Concomitant]
     Route: 048
     Dates: start: 20070425, end: 20070515
  13. METOPROLOL TARTRATE [Concomitant]
     Dosage: REPORTED AS METAPROLOL.
     Route: 048
     Dates: start: 20070226
  14. ONDANSETRON [Concomitant]
  15. DEXAMETASON [Concomitant]
  16. METOCLOPRAMIDE [Concomitant]
  17. NEXIUM [Concomitant]
  18. TRAMADOL HCL [Concomitant]
     Route: 048
  19. FRAXIPARINE [Concomitant]
     Dosage: DRUG REPORTED AS NADROPARINE (FRAXIPARINE) 7600 IE/0.8 ML
     Route: 058
     Dates: start: 20070505

REACTIONS (2)
  - HEADACHE [None]
  - JUGULAR VEIN THROMBOSIS [None]
